FAERS Safety Report 10022642 (Version 1)
Quarter: 2014Q1

REPORT INFORMATION
  Report Type: Spontaneous
  Country: US (occurrence: US)
  Receive Date: 20140319
  Receipt Date: 20140319
  Transmission Date: 20141002
  Serious: Yes (Other)
  Sender: FDA-Public Use
  Company Number: US-ABBVIE-14P-163-1212376-00

PATIENT
  Age: 56 Year
  Sex: Female
  Weight: 86.26 kg

DRUGS (4)
  1. VICODIN [Suspect]
     Indication: PAIN
     Dosage: 10/325MG 4 TIMES PER DAY
     Dates: start: 2009
  2. LYRICA [Suspect]
     Indication: PAIN
     Dates: start: 2011
  3. LYRICA [Suspect]
  4. PERCOCET [Concomitant]
     Indication: PAIN
     Dosage: 10/325 MG 4 TIMES PER DAY

REACTIONS (4)
  - Foot fracture [Unknown]
  - Balance disorder [Unknown]
  - Fall [Unknown]
  - Drug ineffective [Unknown]
